FAERS Safety Report 6559329-3 (Version None)
Quarter: 2010Q1

REPORT INFORMATION
  Report Type: 
  Country: None (occurrence: None)
  Receive Date: 20100129
  Receipt Date: 20090831
  Transmission Date: 20100710
  Serious: No
  Sender: FDA-Public Use
  Company Number: US-ABBOTT-09P-163-0594256-00

PATIENT
  Weight: 54.48 kg

DRUGS (1)
  1. HUMIRA [Suspect]
     Indication: CROHN'S DISEASE
     Dates: start: 20090828

REACTIONS (6)
  - ABDOMINAL PAIN UPPER [None]
  - FATIGUE [None]
  - INJECTION SITE HAEMATOMA [None]
  - PAIN IN EXTREMITY [None]
  - PARAESTHESIA [None]
  - SENSATION OF HEAVINESS [None]
